FAERS Safety Report 5709079-8 (Version None)
Quarter: 2008Q2

REPORT INFORMATION
  Report Type: 
  Country: None (occurrence: None)
  Receive Date: 20080418
  Receipt Date: 20080407
  Transmission Date: 20081010
  Serious: Yes (Other)
  Sender: FDA-Public Use
  Company Number: FR-JNJFOC-20080402246

PATIENT
  Sex: Female

DRUGS (1)
  1. IMODIUM [Suspect]
     Indication: DIARRHOEA
     Route: 048

REACTIONS (1)
  - AMNESIA [None]
